FAERS Safety Report 5734393-X (Version None)
Quarter: 2008Q2

REPORT INFORMATION
  Report Type: 
  Country: None (occurrence: None)
  Receive Date: 20080508
  Receipt Date: 20080508
  Transmission Date: 20081010
  Serious: Yes (Life-Threatening, Disabling)
  Sender: FDA-Public Use
  Company Number: None

PATIENT
  Age: 86 Year
  Sex: Male
  Weight: 64 kg

DRUGS (1)
  1. INSULIN GLARGINE [Suspect]
     Dosage: 3 UNITS SQ
     Route: 058
     Dates: start: 20071106, end: 20071106

REACTIONS (1)
  - BLOOD GLUCOSE DECREASED [None]
